FAERS Safety Report 7922746-0 (Version None)
Quarter: 2011Q4

REPORT INFORMATION
  Report Type: 
  Country: None (occurrence: None)
  Receive Date: 20111117
  Receipt Date: 20110719
  Transmission Date: 20120403
  Serious: No
  Sender: FDA-Public Use
  Company Number: US-ALLERGAN-1109743US

PATIENT
  Age: 71 Year
  Sex: Male

DRUGS (4)
  1. LUMIGAN [Concomitant]
     Indication: GLAUCOMA
     Dosage: 1 GTT, QHS
     Route: 047
     Dates: start: 20090101
  2. TEARS [Concomitant]
  3. COMBIGAN [Suspect]
     Indication: OPTIC NEUROPATHY
  4. COMBIGAN [Suspect]
     Indication: GLAUCOMA
     Dosage: 1 GTT, BID
     Route: 047
     Dates: start: 20110713

REACTIONS (3)
  - EYELIDS PRURITUS [None]
  - DRY EYE [None]
  - OCULAR DISCOMFORT [None]
